FAERS Safety Report 14577455 (Version 2)
Quarter: 2018Q1

REPORT INFORMATION
  Report Type: Spontaneous
  Country: US (occurrence: US)
  Receive Date: 20180227
  Receipt Date: 20180305
  Transmission Date: 20180509
  Serious: Yes (Hospitalization, Other)
  Sender: FDA-Public Use
  Company Number: US-DRREDDYS-USA/USA/18/0096454

PATIENT
  Age: 61 Year
  Sex: Female

DRUGS (2)
  1. SULFAMETHOXAZOLE /TRIMETHOPRIM [Suspect]
     Active Substance: SULFAMETHOXAZOLE\TRIMETHOPRIM
     Indication: PROPHYLAXIS
     Dosage: TWICE DAILY ON SATURDAYS AND SUNDAYS ONLY?SULFAMETHOXAZOLE (800 MG)/ TRIMETHOPRIM (160 MG)
     Route: 048
  2. TACROLIMUS. [Suspect]
     Active Substance: TACROLIMUS
     Indication: IMMUNOSUPPRESSION
     Route: 065

REACTIONS (5)
  - Renal tubular necrosis [Recovered/Resolved]
  - Renal failure [Recovered/Resolved]
  - Nephropathy toxic [Recovered/Resolved]
  - Autoimmune haemolytic anaemia [Recovering/Resolving]
  - Thrombocytopenia [Recovering/Resolving]
